FAERS Safety Report 10202180 (Version 1)
Quarter: 2014Q2

REPORT INFORMATION
  Report Type: Spontaneous
  Country: FR (occurrence: FR)
  Receive Date: 20140528
  Receipt Date: 20140528
  Transmission Date: 20141212
  Serious: Yes (Hospitalization)
  Sender: FDA-Public Use
  Company Number: FR-GLAXOSMITHKLINE-B0996481A

PATIENT
  Age: 94 Year
  Sex: Female
  Weight: 51 kg

DRUGS (5)
  1. ARIXTRA [Suspect]
     Indication: PULMONARY EMBOLISM
     Dosage: 2.5MG PER DAY
     Route: 058
     Dates: start: 20140210, end: 20140225
  2. ARIXTRA [Suspect]
     Indication: PULMONARY EMBOLISM
     Dosage: 5MG PER DAY
     Route: 058
     Dates: start: 20140207, end: 20140209
  3. COUMADINE [Suspect]
     Indication: PULMONARY EMBOLISM
     Route: 048
     Dates: start: 20140207, end: 20140216
  4. INEXIUM [Concomitant]
     Route: 065
     Dates: start: 20140208
  5. ALPRAZOLAM [Concomitant]
     Route: 065
     Dates: start: 20140217

REACTIONS (3)
  - Haematoma [Recovered/Resolved]
  - Anaemia [Recovered/Resolved]
  - Drug administration error [Unknown]
